FAERS Safety Report 16075450 (Version 1)
Quarter: 2019Q1

REPORT INFORMATION
  Report Type: Spontaneous
  Country: CA (occurrence: CA)
  Receive Date: 20190315
  Receipt Date: 20190315
  Transmission Date: 20190418
  Serious: Yes (Hospitalization)
  Sender: FDA-Public Use
  Company Number: CA-AUROBINDO-AUR-APL-2019-012912

PATIENT

DRUGS (2)
  1. PONATINIB [Suspect]
     Active Substance: PONATINIB
     Indication: ACUTE LYMPHOCYTIC LEUKAEMIA
     Dosage: 45 MILLIGRAM
     Route: 048
  2. ALENDRONIC ACID TABLETS [Suspect]
     Active Substance: ALENDRONIC ACID
     Indication: OSTEOPOROSIS
     Dosage: 70 MILLIGRAM
     Route: 065

REACTIONS (10)
  - Arthralgia [Unknown]
  - Fatigue [Unknown]
  - Bone density decreased [Unknown]
  - Malaise [Unknown]
  - Sleep disorder [Unknown]
  - Cognitive disorder [Unknown]
  - Weight decreased [Unknown]
  - Muscle spasms [Unknown]
  - Pain [Unknown]
  - Nasopharyngitis [Unknown]
